FAERS Safety Report 9464256 (Version 1)
Quarter: 2013Q3

REPORT INFORMATION
  Report Type: Spontaneous
  Country: US (occurrence: US)
  Receive Date: 20130819
  Receipt Date: 20130819
  Transmission Date: 20140515
  Serious: No
  Sender: FDA-Public Use
  Company Number: US-009507513-1308USA007068

PATIENT
  Sex: Female

DRUGS (3)
  1. PEGINTRON [Suspect]
     Indication: HEPATITIS C
     Dosage: REDIPEN, UNK
     Dates: start: 20130705
  2. REBETOL [Suspect]
     Indication: HEPATITIS C
     Dosage: UNK
     Dates: start: 20130705
  3. VICTRELIS [Suspect]
     Dosage: UNK
     Dates: start: 20130803, end: 20130806

REACTIONS (7)
  - Adverse event [Unknown]
  - Dysgeusia [Unknown]
  - Chills [Unknown]
  - Nausea [Unknown]
  - Weight decreased [Unknown]
  - Influenza like illness [Unknown]
  - Headache [Unknown]
